FAERS Safety Report 12878668 (Version 2)
Quarter: 2016Q4

REPORT INFORMATION
  Report Type: Spontaneous
  Country: US (occurrence: US)
  Receive Date: 20161024
  Receipt Date: 20161028
  Transmission Date: 20170207
  Serious: Yes (Life-Threatening)
  Sender: FDA-Public Use
  Company Number: US-SA-2016SA193614

PATIENT
  Age: 16 Year
  Sex: Male

DRUGS (3)
  1. DIPHENHYDRAMINE. [Concomitant]
     Active Substance: DIPHENHYDRAMINE
     Indication: URTICARIA
     Route: 042
  2. METHYLPREDNISOLONE. [Concomitant]
     Active Substance: METHYLPREDNISOLONE
     Indication: URTICARIA
  3. EPINEPHRINE. [Suspect]
     Active Substance: EPINEPHRINE
     Indication: URTICARIA
     Route: 042

REACTIONS (9)
  - Tachycardia [Recovered/Resolved]
  - Troponin increased [Recovered/Resolved]
  - Stress cardiomyopathy [Recovered/Resolved]
  - Respiratory distress [Recovered/Resolved]
  - Oxygen saturation decreased [Recovered/Resolved]
  - Ejection fraction decreased [Recovered/Resolved]
  - Ischaemia [Recovered/Resolved]
  - Hypertension [Recovered/Resolved]
  - Incorrect route of drug administration [Unknown]
